FAERS Safety Report 14117782 (Version 1)
Quarter: 2017Q4

REPORT INFORMATION
  Report Type: Spontaneous
  Country: US (occurrence: US)
  Receive Date: 20171023
  Receipt Date: 20171023
  Transmission Date: 20180321
  Serious: No
  Sender: FDA-Public Use
  Company Number: US-ALLERGAN-1710682US

PATIENT
  Sex: Female

DRUGS (19)
  1. KLONOPIN [Concomitant]
     Active Substance: CLONAZEPAM
     Indication: ANXIETY
     Dosage: UNK
     Route: 048
  2. MEMANTINE. [Concomitant]
     Active Substance: MEMANTINE
     Indication: OBSESSIVE-COMPULSIVE DISORDER
  3. SULFASALAZINE. [Concomitant]
     Active Substance: SULFASALAZINE
     Indication: ARTHRITIS
     Dosage: UNK
     Route: 048
  4. SINGULAIR [Concomitant]
     Active Substance: MONTELUKAST SODIUM
     Indication: ASTHMA
     Dosage: UNK
     Route: 048
  5. ABILIFY [Concomitant]
     Active Substance: ARIPIPRAZOLE
     Indication: DEPRESSION
     Dosage: UNK
     Route: 048
  6. MELOXICAM. [Concomitant]
     Active Substance: MELOXICAM
     Indication: JOINT SWELLING
     Dosage: UNK
     Route: 048
  7. VENTOLIN [Concomitant]
     Active Substance: ALBUTEROL SULFATE
     Indication: ASTHMA
     Dosage: UNK UNK, PRN
     Route: 055
  8. FLUTICASONE PROPIONATE. [Concomitant]
     Active Substance: FLUTICASONE PROPIONATE
     Indication: HYPERSENSITIVITY
     Dosage: UNK
     Route: 045
  9. LAMICTAL [Concomitant]
     Active Substance: LAMOTRIGINE
     Indication: MOOD ALTERED
     Dosage: UNK
     Route: 048
  10. TRAMADOL. [Concomitant]
     Active Substance: TRAMADOL
     Indication: PAIN
     Dosage: UNK UNK, PRN
     Route: 048
  11. PROZAC [Concomitant]
     Active Substance: FLUOXETINE HYDROCHLORIDE
     Indication: DEPRESSION
     Dosage: UNK
     Route: 048
  12. LOVASTATIN. [Concomitant]
     Active Substance: LOVASTATIN
     Indication: HYPERCHOLESTEROLAEMIA
     Dosage: UNK
     Route: 048
  13. FLUTICASONE FUROATE [Concomitant]
     Active Substance: FLUTICASONE FUROATE
     Indication: ASTHMA
     Dosage: UNK
     Route: 055
  14. LINZESS [Suspect]
     Active Substance: LINACLOTIDE
     Dosage: 290 ?G, QAM
     Route: 048
     Dates: start: 20170329
  15. CORRECTOL NOS [Concomitant]
     Active Substance: BISACODYL OR DOCUSATE SODIUM
     Indication: CONSTIPATION
     Dosage: UNK UNK, PRN
     Route: 048
  16. LINZESS [Suspect]
     Active Substance: LINACLOTIDE
     Indication: CONSTIPATION
     Dosage: 145 ?G, QAM
     Route: 048
     Dates: start: 20170310, end: 20170329
  17. OXYBUTYNIN. [Concomitant]
     Active Substance: OXYBUTYNIN CHLORIDE
     Indication: URINARY INCONTINENCE
     Dosage: UNK
     Route: 048
  18. OMEPRAZOLE. [Concomitant]
     Active Substance: OMEPRAZOLE
     Indication: GASTROOESOPHAGEAL REFLUX DISEASE
     Dosage: UNK
     Route: 048
  19. CLARITIN [Concomitant]
     Active Substance: LORATADINE
     Indication: SEASONAL ALLERGY
     Dosage: UNK UNK, PRN
     Route: 048

REACTIONS (1)
  - Drug ineffective [Unknown]
